FAERS Safety Report 19932501 (Version 1)
Quarter: 2021Q4

REPORT INFORMATION
  Report Type: Spontaneous
  Country: US (occurrence: US)
  Receive Date: 20211007
  Receipt Date: 20211007
  Transmission Date: 20220303
  Serious: No
  Sender: FDA-Public Use
  Company Number: None

PATIENT
  Age: 50 Year
  Sex: Female
  Weight: 104 kg

DRUGS (5)
  1. PRIVIGEN [Suspect]
     Active Substance: HUMAN IMMUNOGLOBULIN G
     Indication: Chronic inflammatory demyelinating polyradiculoneuropathy
     Dosage: ?          OTHER FREQUENCY:X 2 DAYS Q 4 WEEKS;
     Route: 041
  2. diphenhydramine 25 mg po [Concomitant]
  3. aspirin ec 81 mg po [Concomitant]
  4. Citolapram 10 mg po [Concomitant]
  5. LISINOPRIL [Concomitant]
     Active Substance: LISINOPRIL

REACTIONS (7)
  - Pruritus [None]
  - Rash erythematous [None]
  - Joint swelling [None]
  - Sensory disturbance [None]
  - Dysphagia [None]
  - Vomiting [None]
  - Dyspnoea [None]

NARRATIVE: CASE EVENT DATE: 20210916
